FAERS Safety Report 15677006 (Version 1)
Quarter: 2018Q4

REPORT INFORMATION
  Report Type: Spontaneous
  Country: BR (occurrence: BR)
  Receive Date: 20181130
  Receipt Date: 20181130
  Transmission Date: 20190205
  Serious: Yes (Hospitalization, Other)
  Sender: FDA-Public Use
  Company Number: BR-TORRENT-00004742

PATIENT
  Age: 82 Year
  Sex: Female

DRUGS (4)
  1. SIMVASTATIN. [Concomitant]
     Active Substance: SIMVASTATIN
     Indication: INFARCTION
     Dosage: UNKNOWN
     Route: 048
     Dates: start: 2000
  2. ASPIRINA  PREVENT [Concomitant]
     Active Substance: ASPIRIN
     Indication: INFARCTION
     Dosage: UNKNOWN
     Route: 048
  3. HYDROCHLOROTHIAZIDE. [Concomitant]
     Active Substance: HYDROCHLOROTHIAZIDE
     Indication: INFARCTION
     Dosage: UNKNOWN
     Route: 048
     Dates: start: 2000
  4. TORLOS [Suspect]
     Active Substance: LOSARTAN POTASSIUM
     Indication: INFARCTION
     Dosage: UNKNOWN
     Route: 048
     Dates: start: 2000

REACTIONS (3)
  - Syncope [Unknown]
  - Drug ineffective [Unknown]
  - Hypotension [Unknown]

NARRATIVE: CASE EVENT DATE: 201811
